FAERS Safety Report 10589520 (Version 1)
Quarter: 2014Q4

REPORT INFORMATION
  Report Type: Spontaneous
  Country: US (occurrence: None)
  Receive Date: 20141114
  Receipt Date: 20141114
  Transmission Date: 20150529
  Serious: Yes (Hospitalization)
  Sender: FDA-Public Use
  Company Number: US-ZYDUS-005492

PATIENT
  Age: 17 Year
  Sex: Female

DRUGS (2)
  1. SERTRALINE [Suspect]
     Active Substance: SERTRALINE HYDROCHLORIDE
  2. ZIPRASIDONE (ZIPRASIDONE) (ZIPRASIDONE) [Suspect]
     Active Substance: ZIPRASIDONE

REACTIONS (3)
  - Hyperprolactinaemia [None]
  - Suppressed lactation [None]
  - Blood prolactin decreased [None]
